FAERS Safety Report 7521337-3 (Version None)
Quarter: 2011Q2

REPORT INFORMATION
  Report Type: 
  Country: None (occurrence: None)
  Receive Date: 20110603
  Receipt Date: 20101220
  Transmission Date: 20111010
  Serious: Yes (Death, Hospitalization, Other)
  Sender: FDA-Public Use
  Company Number: JP-BAYER-201011950BYL

PATIENT
  Age: 70 Year
  Sex: Male
  Weight: 46 kg

DRUGS (10)
  1. AMINOLEBAN EN [Concomitant]
     Dosage: DAILY DOSE 150 G
     Route: 048
     Dates: start: 20100608, end: 20100610
  2. OMEPRAZOLE [Concomitant]
     Dosage: DAILY DOSE 20 MG
     Route: 048
     Dates: start: 20100314, end: 20100610
  3. LOXONIN [Concomitant]
     Dosage: DAILY DOSE 60 MG
     Route: 048
     Dates: start: 20100314, end: 20100610
  4. ARGAMATE [Concomitant]
     Dosage: DAILY DOSE 75 G
     Route: 048
     Dates: start: 20100412, end: 20100610
  5. LAMIVUDINE [Concomitant]
     Dosage: DAILY DOSE 13.5 G
     Route: 048
     Dates: start: 20100311, end: 20100610
  6. AMLODIPINE [Concomitant]
     Indication: HYPERTENSION
     Dosage: 2.5 MG (DAILY DOSE), , ORAL
     Route: 048
  7. AMLODIPINE [Concomitant]
     Dosage: 5.0 MG (DAILY DOSE), , ORAL
     Route: 048
  8. URSO 250 [Concomitant]
     Dosage: DAILY DOSE 600 MG
     Route: 048
     Dates: end: 20100610
  9. NEXAVAR [Suspect]
     Indication: HEPATIC NEOPLASM MALIGNANT
     Dosage: 200 MG, BID
     Route: 048
     Dates: start: 20100407, end: 20100610
  10. CANDESARTAN CILEXETIL [Concomitant]
     Indication: HYPERTENSION
     Dosage: DAILY DOSE 8 MG
     Route: 048
     Dates: end: 20100610

REACTIONS (5)
  - HYPERTENSION [None]
  - DELIRIUM [None]
  - DECREASED APPETITE [None]
  - HEPATIC ENCEPHALOPATHY [None]
  - RENAL IMPAIRMENT [None]
